FAERS Safety Report 6423791-7 (Version None)
Quarter: 2009Q4

REPORT INFORMATION
  Report Type: 
  Country: None (occurrence: None)
  Receive Date: 20091030
  Receipt Date: 20091030
  Transmission Date: 20100525
  Serious: Yes (Hospitalization)
  Sender: FDA-Public Use
  Company Number: None

PATIENT
  Age: 46 Year
  Sex: Male
  Weight: 85.8 kg

DRUGS (2)
  1. BENZTROPINE MESYLATE [Suspect]
     Indication: ADVERSE EVENT
     Dosage: 1 MG BID PO
     Route: 048
     Dates: start: 20080703, end: 20090112
  2. METOCLOPRAMIDE [Suspect]
     Indication: GASTRIC DISORDER
     Dosage: 10 MG TID PO
     Route: 048
     Dates: start: 20070509, end: 20090112

REACTIONS (1)
  - DELIRIUM [None]
